FAERS Safety Report 19655085 (Version 4)
Quarter: 2021Q4

REPORT INFORMATION
  Report Type: Spontaneous
  Country: US (occurrence: US)
  Receive Date: 20210804
  Receipt Date: 20211230
  Transmission Date: 20220303
  Serious: Yes (Other)
  Sender: FDA-Public Use
  Company Number: US-GLAXOSMITHKLINE-US2021161066

PATIENT
  Sex: Female

DRUGS (3)
  1. ZEJULA [Suspect]
     Active Substance: NIRAPARIB
     Indication: Uterine cancer
     Dosage: 200 MG, QD
     Route: 048
     Dates: start: 20210714
  2. ZEJULA [Suspect]
     Active Substance: NIRAPARIB
     Dosage: 200 MG, QD
     Route: 048
  3. ZEJULA [Suspect]
     Active Substance: NIRAPARIB
     Dosage: 200 MG, QD
     Route: 048
     Dates: end: 20211217

REACTIONS (15)
  - Coccidioidomycosis [Unknown]
  - Pulmonary thrombosis [Unknown]
  - Thrombosis [Unknown]
  - Infection [Unknown]
  - Urticaria [Unknown]
  - Vomiting [Unknown]
  - Hyperhidrosis [Unknown]
  - Dizziness [Unknown]
  - Visual impairment [Unknown]
  - Eructation [Unknown]
  - Abdominal distension [Not Recovered/Not Resolved]
  - Abdominal pain upper [Unknown]
  - Urinary tract infection [Unknown]
  - Decreased appetite [Unknown]
  - Off label use [Unknown]
